FAERS Safety Report 5972836-7 (Version None)
Quarter: 2008Q4

REPORT INFORMATION
  Report Type: 
  Country: None (occurrence: None)
  Receive Date: 20081201
  Receipt Date: 20081117
  Transmission Date: 20090506
  Serious: Yes (Hospitalization)
  Sender: FDA-Public Use
  Company Number: JP-ROCHE-597584

PATIENT
  Age: 56 Year
  Sex: Male

DRUGS (6)
  1. MYCOPHENOLATE MOFETIL [Suspect]
     Indication: IMMUNOSUPPRESSANT DRUG THERAPY
     Route: 065
  2. CYCLOSPORINE [Suspect]
     Indication: IMMUNOSUPPRESSANT DRUG THERAPY
     Route: 065
  3. PREDNISOLONE [Suspect]
     Indication: IMMUNOSUPPRESSANT DRUG THERAPY
     Route: 065
  4. BASILIXIMAB [Suspect]
     Indication: IMMUNOSUPPRESSANT DRUG THERAPY
     Route: 065
  5. PENTAMIDINE [Suspect]
     Route: 065
  6. SULFAMETHOXAZOLE AND TRIMETHOPRIM [Suspect]
     Route: 065

REACTIONS (3)
  - PARALYSIS [None]
  - PNEUMOCYSTIS JIROVECI PNEUMONIA [None]
  - REVERSIBLE POSTERIOR LEUKOENCEPHALOPATHY SYNDROME [None]
